FAERS Safety Report 19102006 (Version 2)
Quarter: 2021Q2

REPORT INFORMATION
  Report Type: Spontaneous
  Country: PL (occurrence: PL)
  Receive Date: 20210407
  Receipt Date: 20210601
  Transmission Date: 20210717
  Serious: Yes (Death, Life-Threatening, Other)
  Sender: FDA-Public Use
  Company Number: PL-BRISTOL-MYERS SQUIBB COMPANY-BMS-2021-032204

PATIENT
  Age: 86 Year
  Sex: Female

DRUGS (7)
  1. ELIQUIS [Suspect]
     Active Substance: APIXABAN
     Indication: CEREBROVASCULAR ACCIDENT PROPHYLAXIS
     Dosage: 2 X 1/2
     Route: 048
     Dates: end: 20210202
  2. CONCOR COR [Suspect]
     Active Substance: BISOPROLOL FUMARATE
     Indication: ATRIAL FIBRILLATION
     Dosage: 1/4 PLUS OBL 1XDAY
     Route: 048
     Dates: end: 20210202
  3. NOCLAUD [Suspect]
     Active Substance: CILOSTAZOL
     Indication: ARTERIOSCLEROSIS
     Dosage: UNK UNK, QD
     Route: 048
     Dates: end: 20210202
  4. COVID?19 VACCINE NOS. [Suspect]
     Active Substance: COVID-19 VACCINE NOS
     Indication: PRODUCT USED FOR UNKNOWN INDICATION
     Route: 030
     Dates: start: 20210202, end: 20210202
  5. CORDARONE [Suspect]
     Active Substance: AMIODARONE HYDROCHLORIDE
     Indication: ATRIAL FIBRILLATION
     Dosage: 1/2 PLUS FROM 5 DAY/7
     Route: 048
     Dates: end: 20210202
  6. ROSWERA [Suspect]
     Active Substance: ROSUVASTATIN
     Indication: ARTERIOSCLEROSIS
     Route: 048
     Dates: end: 20210202
  7. METYPRED [METHYLPREDNISOLONE] [Suspect]
     Active Substance: METHYLPREDNISOLONE
     Indication: MYALGIA
     Dosage: 1/2 EVERY OTHER DAY
     Route: 065
     Dates: end: 20210202

REACTIONS (5)
  - Cardiac arrest [Fatal]
  - Erythema [Fatal]
  - Head injury [Fatal]
  - Syncope [Fatal]
  - Fall [Fatal]

NARRATIVE: CASE EVENT DATE: 20210202
